FAERS Safety Report 9253926 (Version 1)
Quarter: 2013Q2

REPORT INFORMATION
  Report Type: Spontaneous
  Country: US (occurrence: None)
  Receive Date: 20130419
  Receipt Date: 20130419
  Transmission Date: 20140414
  Serious: Yes (Hospitalization)
  Sender: FDA-Public Use
  Company Number: PR-AE13-000338

PATIENT
  Age: 53 Year
  Sex: Male

DRUGS (2)
  1. DEBROX [Suspect]
     Indication: CERUMEN REMOVAL
     Dosage: 5-10 DRPS/EAR, 1X, OTIC
     Dates: start: 20130316
  2. UNKNOWN CHOLESTEROL MEDICATION [Concomitant]

REACTIONS (3)
  - Dizziness [None]
  - Vomiting [None]
  - Ear infection [None]
